FAERS Safety Report 5467326-4 (Version None)
Quarter: 2007Q3

REPORT INFORMATION
  Report Type: 
  Country: None (occurrence: None)
  Receive Date: 20070820
  Receipt Date: 20070816
  Transmission Date: 20080115
  Serious: No
  Sender: FDA-Public Use
  Company Number: WAES0704USA03985

PATIENT
  Age: 70 Year
  Sex: Male
  Weight: 83.4619 kg

DRUGS (6)
  1. JANUVIA [Suspect]
     Indication: TYPE 2 DIABETES MELLITUS
     Dosage: 100 MG/DAILY/PO
     Route: 048
     Dates: start: 20070319, end: 20070323
  2. AVANDIA [Concomitant]
  3. DIOVAN [Concomitant]
  4. GLUCOPHAGE [Concomitant]
  5. PREVACID [Concomitant]
  6. ZETIA [Concomitant]

REACTIONS (2)
  - RASH ERYTHEMATOUS [None]
  - RASH PRURITIC [None]
